FAERS Safety Report 21930340 (Version 1)
Quarter: 2023Q1

REPORT INFORMATION
  Report Type: Report from Study
  Country: US (occurrence: US)
  Receive Date: 20230131
  Receipt Date: 20230131
  Transmission Date: 20230418
  Serious: Yes (Hospitalization, Other)
  Sender: FDA-Public Use
  Company Number: US-ABBVIE-4288643

PATIENT
  Sex: Female

DRUGS (1)
  1. SKYRIZI [Suspect]
     Active Substance: RISANKIZUMAB-RZAA
     Indication: Psoriasis
     Route: 065
     Dates: start: 20210225

REACTIONS (5)
  - Head injury [Recovering/Resolving]
  - Visual impairment [Unknown]
  - Fall [Recovering/Resolving]
  - Loss of consciousness [Unknown]
  - Hemiplegia [Unknown]
